FAERS Safety Report 9738952 (Version 1)
Quarter: 2013Q4

REPORT INFORMATION
  Report Type: Report from Study
  Country: AR (occurrence: AR)
  Receive Date: 20131209
  Receipt Date: 20131209
  Transmission Date: 20140711
  Serious: Yes (Other)
  Sender: FDA-Public Use
  Company Number: PHHY2013AR140868

PATIENT
  Age: 75 Year
  Sex: Female

DRUGS (3)
  1. ONBREZ [Suspect]
     Indication: ASTHMA
     Dosage: UNK, BID
  2. ONBREZ [Suspect]
     Indication: RESPIRATORY DISORDER
     Dosage: UNK, QD
     Dates: start: 20131103
  3. ONBREZ [Suspect]
     Indication: OFF LABEL USE

REACTIONS (5)
  - Asthma [Recovering/Resolving]
  - Dyspnoea [Recovering/Resolving]
  - Cough [Recovering/Resolving]
  - Agitation [Recovering/Resolving]
  - Inappropriate schedule of drug administration [Recovering/Resolving]
